FAERS Safety Report 4368775-8 (Version None)
Quarter: 2004Q2

REPORT INFORMATION
  Report Type: 
  Country: None (occurrence: None)
  Receive Date: 20040525
  Receipt Date: 20040511
  Transmission Date: 20050107
  Serious: No
  Sender: FDA-Public Use
  Company Number: 2004AC00110

PATIENT
  Age: 45 Year
  Sex: Male

DRUGS (2)
  1. BUPIVACAINE [Suspect]
     Indication: ANALGESIC EFFECT
     Dosage: DOSE INCREASED + MAINTAINED BETWEEN 24 + 26.6 MG/D. THEN REDUCED TO 20 MG/D AFTER CLONIDINE STARTED
  2. CLONIDINE HCL [Suspect]
     Indication: ANALGESIC EFFECT
     Dosage: 200 UG DAILY IT
     Route: 038

REACTIONS (21)
  - ANAESTHETIC COMPLICATION [None]
  - ASTHENIA [None]
  - ATAXIA [None]
  - BACK PAIN [None]
  - CATHETER RELATED COMPLICATION [None]
  - CONSTIPATION [None]
  - DRUG EFFECT DECREASED [None]
  - EXTENSOR PLANTAR RESPONSE [None]
  - FALL [None]
  - HYPERREFLEXIA [None]
  - HYPOAESTHESIA [None]
  - LOSS OF PROPRIOCEPTION [None]
  - MENINGEAL NEOPLASM [None]
  - NEUROTOXICITY [None]
  - ORTHOSTATIC HYPOTENSION [None]
  - PARAESTHESIA [None]
  - PERONEAL NERVE PALSY [None]
  - SENSORY DISTURBANCE [None]
  - SPINAL CORD INJURY [None]
  - SPINAL CORD OEDEMA [None]
  - URINARY RETENTION [None]
